APPROVED DRUG PRODUCT: EPINEPHRINE
Active Ingredient: EPINEPHRINE
Strength: 30MG/30ML (1MG/ML)
Dosage Form/Route: SOLUTION;INTRAMUSCULAR, INTRAVENOUS, SUBCUTANEOUS
Application: A219239 | Product #002 | TE Code: AP
Applicant: GLAND PHARMA LTD
Approved: Oct 2, 2025 | RLD: No | RS: No | Type: RX